FAERS Safety Report 9349934 (Version 2)
Quarter: 2013Q3

REPORT INFORMATION
  Report Type: Report from Study
  Country: BR (occurrence: BR)
  Receive Date: 20130614
  Receipt Date: 20130917
  Transmission Date: 20140515
  Serious: Yes (Other)
  Sender: FDA-Public Use
  Company Number: PHHY2013BR056613

PATIENT
  Sex: Male

DRUGS (3)
  1. ONBREZ [Suspect]
     Indication: CHRONIC OBSTRUCTIVE PULMONARY DISEASE
     Dosage: 150 UG, BID
  2. ONBREZ [Suspect]
     Dosage: 150 UG, QD
  3. SYMBICORT [Suspect]
     Indication: LUNG DISORDER

REACTIONS (5)
  - Leukaemia [Recovering/Resolving]
  - Blood pressure increased [Recovering/Resolving]
  - Heart rate abnormal [Recovering/Resolving]
  - Lung disorder [Recovering/Resolving]
  - Incorrect dose administered [Unknown]
